FAERS Safety Report 7480625-X (Version None)
Quarter: 2011Q2

REPORT INFORMATION
  Report Type: 
  Country: None (occurrence: None)
  Receive Date: 20110516
  Receipt Date: 20110506
  Transmission Date: 20111010
  Serious: Yes (Other)
  Sender: FDA-Public Use
  Company Number: US-US-EMD SERONO, INC.-7052799

PATIENT
  Sex: Male
  Weight: 108 kg

DRUGS (15)
  1. AGENT ORANGE EXPOSURE [Suspect]
  2. REBIF [Suspect]
     Indication: MULTIPLE SCLEROSIS
     Route: 058
     Dates: start: 20100309
  3. DESONIDE [Concomitant]
     Route: 061
  4. LIDOCAINE X4 [Concomitant]
     Route: 061
  5. LISINOPRIL [Concomitant]
  6. PROTOPIC [Concomitant]
     Indication: PSORIASIS
  7. FENOFIBRATE (MICRONIZED) [Concomitant]
     Route: 048
  8. LIDODERM [Concomitant]
  9. ADVAIR HFA [Concomitant]
  10. HYDROCHLOROTHIAZIDE [Concomitant]
  11. SPIRONOLACTONE [Concomitant]
  12. SIMVASTATIN [Concomitant]
  13. METOPROLOL SUCCINATE [Concomitant]
  14. VERAPAMIL HCL [Concomitant]
  15. OXYCONTIN [Concomitant]
     Indication: PAIN

REACTIONS (5)
  - PSORIASIS [None]
  - TYPE 2 DIABETES MELLITUS [None]
  - PIRIFORMIS SYNDROME [None]
  - PAIN IN EXTREMITY [None]
  - MULTIPLE SCLEROSIS RELAPSE [None]
